FAERS Safety Report 18780298 (Version 1)
Quarter: 2021Q1

REPORT INFORMATION
  Report Type: Spontaneous
  Country: US (occurrence: US)
  Receive Date: 20210122
  Receipt Date: 20210122
  Transmission Date: 20210419
  Serious: Yes (Hospitalization)
  Sender: FDA-Public Use
  Company Number: None

PATIENT
  Age: 69 Year
  Sex: Female
  Weight: 100 kg

DRUGS (16)
  1. VOLTAREN 1% GEL [Concomitant]
  2. FENTANYL TRANSDERMAL SYSTEM [Concomitant]
     Active Substance: FENTANYL
  3. XOPENEX HFA [Concomitant]
     Active Substance: LEVALBUTEROL TARTRATE
  4. METOPROLOL SUCCINATE ER 50MG [Concomitant]
  5. OMEPRAZOLE 40MG [Concomitant]
     Active Substance: OMEPRAZOLE
  6. ONDANSETRON 4MG [Concomitant]
     Active Substance: ONDANSETRON
  7. ESCITALOPRAM [Concomitant]
     Active Substance: ESCITALOPRAM OXALATE
  8. LEFLUNOMIDE 20MG [Concomitant]
     Active Substance: LEFLUNOMIDE
  9. LORAZEPAM 1MG [Concomitant]
     Active Substance: LORAZEPAM
  10. VITAMIN D2 [Concomitant]
     Active Substance: ERGOCALCIFEROL
  11. HYOSCYAMINE 0.125 [Concomitant]
  12. PREDNISONE 5MG [Concomitant]
     Active Substance: PREDNISONE
  13. WARFARIN [Suspect]
     Active Substance: WARFARIN
     Indication: ATRIAL FIBRILLATION
     Dates: start: 20081202, end: 20210120
  14. LEVOTHYROXINE 112MCG [Concomitant]
     Active Substance: LEVOTHYROXINE
  15. OXYCODONE 15MG [Concomitant]
     Active Substance: OXYCODONE
  16. POTASSIUM CHLORIDE 10MEQ [Concomitant]
     Active Substance: POTASSIUM CHLORIDE

REACTIONS (2)
  - International normalised ratio increased [None]
  - Gastrointestinal haemorrhage [None]

NARRATIVE: CASE EVENT DATE: 20210116
